FAERS Safety Report 9197145 (Version 2)
Quarter: 2013Q4

REPORT INFORMATION
  Report Type: Spontaneous
  Country: US (occurrence: US)
  Receive Date: 20130328
  Receipt Date: 20131202
  Transmission Date: 20140711
  Serious: Yes (Other)
  Sender: FDA-Public Use
  Company Number: US-BAYER-2013-038728

PATIENT
  Age: 29 Year
  Sex: Female

DRUGS (9)
  1. YAZ [Suspect]
     Dosage: UNK
  2. YASMIN [Suspect]
     Dosage: UNK
  3. OCELLA [Suspect]
     Dosage: UNK
  4. PRILOSEC [Concomitant]
     Dosage: 20 MG, DAILY
     Route: 048
  5. ZANTAC [Concomitant]
     Dosage: 300 MG DAILY, HS
     Route: 048
  6. ZYRTEC [Concomitant]
  7. PHENERGAN [Concomitant]
  8. PRENATAL [Concomitant]
  9. AUGMENTIN [Concomitant]

REACTIONS (6)
  - Gallbladder injury [None]
  - Cholecystitis chronic [None]
  - Biliary dyskinesia [None]
  - Injury [None]
  - Pain [None]
  - Pain [None]
